FAERS Safety Report 4335433-5 (Version None)
Quarter: 2004Q2

REPORT INFORMATION
  Report Type: 
  Country: None (occurrence: None)
  Receive Date: 20040408
  Receipt Date: 20040408
  Transmission Date: 20050107
  Serious: Yes (Life-Threatening, Hospitalization)
  Sender: FDA-Public Use
  Company Number: None

PATIENT
  Sex: Male

DRUGS (1)
  1. REOPRO [Suspect]
     Indication: CATHETERISATION CARDIAC
     Dosage: 0.125 MG/KG MIN INTRAVENOUS
     Route: 042
     Dates: start: 20040205, end: 20040205

REACTIONS (1)
  - THROMBOCYTOPENIA [None]
